FAERS Safety Report 12585097 (Version 1)
Quarter: 2016Q3

REPORT INFORMATION
  Report Type: Spontaneous
  Country: FR (occurrence: FR)
  Receive Date: 20160723
  Receipt Date: 20160723
  Transmission Date: 20161109
  Serious: Yes (Hospitalization, Other)
  Sender: FDA-Public Use
  Company Number: FR-ACCORD-042576

PATIENT
  Age: 25 Year
  Sex: Male

DRUGS (5)
  1. LEVETIRACETAM. [Suspect]
     Active Substance: LEVETIRACETAM
     Indication: EPILEPSY
     Dosage: REINTRODUCED AT DOSE 500 MG TWICE DAILY AT DAY 02 OF ADMISSION AND THEN WITHDRAWN
  2. CLOBAZAM [Concomitant]
     Active Substance: CLOBAZAM
     Dosage: DOSE: 5 MG THRICE DAILY ON DAY 01, DECREASED TO 5 MG TWICE DAILY ON DAY 04, AND STOPPED ON DAY 05.
  3. ENOXAPARIN [Concomitant]
     Active Substance: ENOXAPARIN
  4. PROPOFOL. [Concomitant]
     Active Substance: PROPOFOL
     Dosage: RECEIVED FOR ONE DAY, AND STOPPED ON DAY 02
  5. ESOMEPRAZOLE [Concomitant]
     Active Substance: ESOMEPRAZOLE
     Dosage: STRENGTH 40 MG

REACTIONS (2)
  - Blood creatine phosphokinase increased [Recovering/Resolving]
  - Treatment noncompliance [Unknown]
